FAERS Safety Report 12353147 (Version 1)
Quarter: 2016Q2

REPORT INFORMATION
  Report Type: Spontaneous
  Country: US (occurrence: US)
  Receive Date: 20160510
  Receipt Date: 20160510
  Transmission Date: 20160815
  Serious: Yes (Other)
  Sender: FDA-Public Use
  Company Number: US-LUNDBECK-DKLU2013364

PATIENT
  Age: 78 Year
  Sex: Female

DRUGS (1)
  1. NORTHERA [Suspect]
     Active Substance: DROXIDOPA
     Indication: PARKINSON^S DISEASE
     Route: 065
     Dates: start: 201604, end: 20160430

REACTIONS (2)
  - Blood pressure increased [Recovering/Resolving]
  - Headache [Recovered/Resolved]

NARRATIVE: CASE EVENT DATE: 20160430
